FAERS Safety Report 15267353 (Version 1)
Quarter: 2018Q3

REPORT INFORMATION
  Report Type: Spontaneous
  Country: US (occurrence: US)
  Receive Date: 20180724
  Receipt Date: 20180724
  Transmission Date: 20181010
  Serious: Yes (Hospitalization, Disabling, Congenital Anomaly, Other)
  Sender: FDA-Public Use
  Company Number: None

PATIENT
  Age: 59 Year
  Sex: Male
  Weight: 81 kg

DRUGS (1)
  1. BACLOFEN 10 MG TABLETS [Suspect]
     Active Substance: BACLOFEN
     Dosage: ?          QUANTITY:1 TABLET(S);?
     Route: 048
     Dates: start: 20180523, end: 20180525

REACTIONS (4)
  - Insomnia [None]
  - Vomiting [None]
  - Screaming [None]
  - Delirium [None]

NARRATIVE: CASE EVENT DATE: 20180524
